FAERS Safety Report 8790805 (Version 1)
Quarter: 2012Q4

REPORT INFORMATION
  Report Type: Spontaneous
  Country: US (occurrence: None)
  Receive Date: 20120913
  Receipt Date: 20120913
  Transmission Date: 20130627
  Serious: Yes (Life-Threatening, Hospitalization, Other)
  Sender: FDA-Public Use
  Company Number: None

PATIENT
  Age: 75 Year
  Sex: Male
  Weight: 73.94 kg

DRUGS (1)
  1. DOXYCYCLINE [Suspect]
     Indication: INFECTION
     Dosage: 1 pill per day oral
April (abut 7 to 10 days)
     Route: 048

REACTIONS (6)
  - Diarrhoea [None]
  - Nausea [None]
  - Dehydration [None]
  - Intervertebral disc protrusion [None]
  - Pain in extremity [None]
  - Nerve compression [None]
